FAERS Safety Report 9836473 (Version 3)
Quarter: 2014Q2

REPORT INFORMATION
  Report Type: Report from Study
  Country: BR (occurrence: BR)
  Receive Date: 20140123
  Receipt Date: 20140411
  Transmission Date: 20141212
  Serious: Yes (Other)
  Sender: FDA-Public Use
  Company Number: BR-ROCHE-1324561

PATIENT
  Age: 41 Year
  Sex: Male
  Weight: 92 kg

DRUGS (6)
  1. ACTEMRA [Suspect]
     Indication: JUVENILE IDIOPATHIC ARTHRITIS
     Route: 042
     Dates: start: 20130601
  2. ACTEMRA [Suspect]
     Dosage: 640 MG (8 MG X 80 KG)
     Route: 065
  3. ATENOLOL [Concomitant]
  4. PREDNISONE [Concomitant]
     Route: 065
  5. METHOTREXATE [Concomitant]
     Route: 065
  6. OMEPRAZOLE [Concomitant]

REACTIONS (5)
  - Infusion related reaction [Recovered/Resolved]
  - Loss of consciousness [Recovered/Resolved]
  - Syncope [Recovered/Resolved]
  - Feeling hot [Unknown]
  - Blood pressure decreased [Unknown]
